FAERS Safety Report 12849316 (Version 7)
Quarter: 2019Q2

REPORT INFORMATION
  Report Type: Report from Study
  Country: BR (occurrence: BR)
  Receive Date: 20161014
  Receipt Date: 20190515
  Transmission Date: 20190711
  Serious: Yes (Hospitalization, Other)
  Sender: FDA-Public Use
  Company Number: BR-TAKEDA-2016TUS018040

PATIENT
  Age: 30 Year
  Sex: Female
  Weight: 38 kg

DRUGS (2)
  1. VEDOLIZUMAB [Suspect]
     Active Substance: VEDOLIZUMAB
     Indication: CROHN^S DISEASE
     Dosage: 300 MILLIGRAM
     Route: 042
     Dates: start: 20160812, end: 20161219
  2. VEDOLIZUMAB [Suspect]
     Active Substance: VEDOLIZUMAB
     Dosage: 300 MILLIGRAM
     Route: 042
     Dates: start: 20170321

REACTIONS (5)
  - Stoma site haemorrhage [Unknown]
  - Off label use [Unknown]
  - Dizziness [Unknown]
  - Crohn^s disease [Unknown]
  - Product dose omission [Unknown]

NARRATIVE: CASE EVENT DATE: 201608
